FAERS Safety Report 5345025-7 (Version None)
Quarter: 2007Q2

REPORT INFORMATION
  Report Type: 
  Country: None (occurrence: None)
  Receive Date: 20070416
  Receipt Date: 20061230
  Transmission Date: 20071010
  Serious: No
  Sender: FDA-Public Use
  Company Number: 2007SP000022

PATIENT
  Age: 67 Year
  Sex: Female
  Weight: 66.6788 kg

DRUGS (3)
  1. LUNESTA [Suspect]
     Indication: INSOMNIA
     Dosage: 1.5 MG; PRN; ORAL
     Route: 048
     Dates: start: 20060101
  2. SYNTHROID [Concomitant]
  3. ESTRATEST [Concomitant]

REACTIONS (1)
  - WEIGHT INCREASED [None]
